FAERS Safety Report 7545298-6 (Version None)
Quarter: 2011Q2

REPORT INFORMATION
  Report Type: 
  Country: None (occurrence: None)
  Receive Date: 20110524
  Receipt Date: 20100616
  Transmission Date: 20111010
  Serious: No
  Sender: FDA-Public Use
  Company Number: 027426

PATIENT
  Sex: Male

DRUGS (1)
  1. CIMZIA [Suspect]
     Indication: CROHN'S DISEASE
     Dosage: (400 MG 1X/12 WEEKS SUBCUTANEOUS)
     Route: 058
     Dates: start: 20100113, end: 20100525

REACTIONS (2)
  - GASTRIC DISORDER [None]
  - DRUG INEFFECTIVE [None]
